FAERS Safety Report 7203611-3 (Version None)
Quarter: 2010Q4

REPORT INFORMATION
  Report Type: 
  Country: None (occurrence: None)
  Receive Date: 20101214
  Receipt Date: 20100909
  Transmission Date: 20110411
  Serious: No
  Sender: FDA-Public Use
  Company Number: CA-145093

PATIENT
  Sex: Female

DRUGS (3)
  1. WINRHO [Suspect]
     Indication: IDIOPATHIC THROMBOCYTOPENIC PURPURA
     Dosage: (5000 UG)
     Dates: start: 20090818, end: 20090818
  2. BENADRYL [Concomitant]
  3. SOLU-CORTEF [Concomitant]

REACTIONS (5)
  - ANXIETY [None]
  - BODY TEMPERATURE INCREASED [None]
  - HAEMOLYSIS [None]
  - HYPERSENSITIVITY [None]
  - TACHYCARDIA [None]
